FAERS Safety Report 10599337 (Version 1)
Quarter: 2014Q4

REPORT INFORMATION
  Report Type: Spontaneous
  Country: FR (occurrence: None)
  Receive Date: 20141119
  Receipt Date: 20141119
  Transmission Date: 20150529
  Serious: Yes (Hospitalization)
  Sender: FDA-Public Use
  Company Number: FK201405220

PATIENT
  Age: 46 Year
  Sex: Female

DRUGS (4)
  1. CYTARABINE. [Suspect]
     Active Substance: CYTARABINE
     Indication: ACUTE MYELOID LEUKAEMIA
  2. LOMUSTINE. [Suspect]
     Active Substance: LOMUSTINE
     Indication: ACUTE MYELOID LEUKAEMIA
  3. IDARUBICIN [Suspect]
     Active Substance: IDARUBICIN
     Indication: ACUTE MYELOID LEUKAEMIA
  4. DAUNORUBICIN [Suspect]
     Active Substance: DAUNORUBICIN
     Indication: ACUTE MYELOID LEUKAEMIA

REACTIONS (14)
  - Skin toxicity [None]
  - Pleural effusion [None]
  - Abdominal pain [None]
  - Tricuspid valve incompetence [None]
  - Ascites [None]
  - Apparent life threatening event [None]
  - Febrile neutropenia [None]
  - Geotrichum infection [None]
  - Septic shock [None]
  - Respiratory distress [None]
  - Diarrhoea [None]
  - Colitis [None]
  - Cardiac septal hypertrophy [None]
  - Mitral valve incompetence [None]
